FAERS Safety Report 24550955 (Version 1)
Quarter: 2024Q4

REPORT INFORMATION
  Report Type: Spontaneous
  Country: US (occurrence: US)
  Receive Date: 20241025
  Receipt Date: 20241025
  Transmission Date: 20250115
  Serious: Yes (Other)
  Sender: DR REDDYS
  Company Number: US-DRL-USA-LIT/USA/24/0015820

PATIENT
  Age: 33 Year
  Sex: Female

DRUGS (1)
  1. METHAMPHETAMINE [Suspect]
     Active Substance: METHAMPHETAMINE
     Indication: Product used for unknown indication

REACTIONS (7)
  - Syphilis [Unknown]
  - HIV infection [Unknown]
  - Premature separation of placenta [Unknown]
  - Foetal distress syndrome [Unknown]
  - Drug abuse [Unknown]
  - Exposure during pregnancy [Unknown]
  - Premature delivery [Unknown]
